FAERS Safety Report 6555800-9 (Version None)
Quarter: 2010Q1

REPORT INFORMATION
  Report Type: 
  Country: None (occurrence: None)
  Receive Date: 20100125
  Receipt Date: 20100115
  Transmission Date: 20100710
  Serious: Yes (Hospitalization)
  Sender: FDA-Public Use
  Company Number: 2010SP003657

PATIENT
  Age: 43 Year
  Sex: Male
  Weight: 57 kg

DRUGS (5)
  1. VIRAFERONPEG [Suspect]
     Indication: HEPATITIS C
     Dosage: 100 MCG; QW; SC
     Route: 058
     Dates: start: 20080509, end: 20090213
  2. REBETOL [Suspect]
     Indication: HEPATITIS C
     Dosage: 1000 MG; QD; PO
     Route: 048
     Dates: start: 20080509, end: 20090213
  3. NEURECORMON (EPOETIN BETA) [Suspect]
     Indication: ANAEMIA
     Dosage: 300000 IU; QW; SC
     Route: 058
     Dates: start: 20081126, end: 20090213
  4. NIFEDIPINE [Suspect]
     Indication: HYPERTENSION
     Dosage: 20 MG; QD; PO
     Route: 048
     Dates: end: 20090213
  5. XANAX [Suspect]
     Indication: SLEEP DISORDER
     Dosage: 0.5 MG; QD; PO
     Route: 048
     Dates: start: 20081126, end: 20090213

REACTIONS (3)
  - FEMORAL NECK FRACTURE [None]
  - MALAISE [None]
  - ROAD TRAFFIC ACCIDENT [None]
